FAERS Safety Report 6418745-0 (Version None)
Quarter: 2009Q4

REPORT INFORMATION
  Report Type: 
  Country: None (occurrence: None)
  Receive Date: 20091026
  Receipt Date: 20091015
  Transmission Date: 20100525
  Serious: Yes (Disabling)
  Sender: FDA-Public Use
  Company Number: 1-20438375

PATIENT
  Sex: Female

DRUGS (1)
  1. COLCHICINE (MANUFACTURER UNKNOWN) [Suspect]
     Indication: OFF LABEL USE
     Dates: start: 20050901, end: 20060401

REACTIONS (2)
  - APPARENT DEATH [None]
  - HYPOTONIA [None]
